FAERS Safety Report 10576065 (Version 1)
Quarter: 2014Q4

REPORT INFORMATION
  Report Type: Spontaneous
  Country: US (occurrence: None)
  Receive Date: 20141107
  Receipt Date: 20141107
  Transmission Date: 20150529
  Serious: Yes (Hospitalization)
  Sender: FDA-Public Use
  Company Number: VAL_03566_2014

PATIENT
  Sex: Male

DRUGS (1)
  1. METHERGIN [Suspect]
     Active Substance: METHYLERGONOVINE MALEATE
     Indication: PRODUCT USED FOR UNKNOWN INDICATION
     Dosage: DF
     Route: 030

REACTIONS (7)
  - Accidental exposure to product [None]
  - Oxygen saturation decreased [None]
  - Haematuria [None]
  - Wrong drug administered [None]
  - Haematemesis [None]
  - Respiratory depression [None]
  - Irritability [None]
